FAERS Safety Report 6240759-4 (Version None)
Quarter: 2009Q2

REPORT INFORMATION
  Report Type: 
  Country: None (occurrence: None)
  Receive Date: 20090623
  Receipt Date: 20090617
  Transmission Date: 20091009
  Serious: Yes (Hospitalization)
  Sender: FDA-Public Use
  Company Number: FR-PFIZER INC-2009228044

PATIENT
  Age: 77 Year

DRUGS (5)
  1. TAHOR [Suspect]
     Dosage: 80 MG, 1X/DAY
     Route: 048
     Dates: start: 20090410, end: 20090509
  2. PERINDOPRIL ERBUMINE [Concomitant]
  3. DIFFU K [Concomitant]
  4. AMLODIPINE [Concomitant]
  5. INNOHEP [Concomitant]

REACTIONS (1)
  - CYTOLYTIC HEPATITIS [None]
